FAERS Safety Report 24431766 (Version 1)
Quarter: 2024Q4

REPORT INFORMATION
  Report Type: Other
  Country: DO (occurrence: DO)
  Receive Date: 20241014
  Receipt Date: 20241014
  Transmission Date: 20250115
  Serious: Yes (Death, Hospitalization, Disabling, Other)
  Sender: TOLMAR
  Company Number: DO-TOLMAR, INC.-24DO052813

PATIENT
  Sex: Male

DRUGS (5)
  1. ELIGARD [Suspect]
     Active Substance: LEUPROLIDE ACETATE
     Indication: Prostate cancer
     Dosage: 45 MILLIGRAM, Q 6 MONTH
     Route: 058
     Dates: start: 202403
  2. ELIGARD [Suspect]
     Active Substance: LEUPROLIDE ACETATE
     Dosage: 45 MILLIGRAM, Q 6 MONTH
     Route: 058
     Dates: start: 20230320
  3. ELIGARD [Suspect]
     Active Substance: LEUPROLIDE ACETATE
     Indication: Prostate cancer
     Dosage: UNK
  4. ABIRATRAL [Concomitant]
     Indication: Prostate cancer
     Dosage: UNK
     Dates: end: 2024
  5. PREDNISONE [Concomitant]
     Active Substance: PREDNISONE
     Indication: Prostate cancer
     Dosage: UNK
     Dates: end: 2024

REACTIONS (11)
  - Cardiac arrest [Fatal]
  - Myocardial infarction [Fatal]
  - Metastases to bone [Fatal]
  - Hip fracture [Unknown]
  - Pathological fracture [Unknown]
  - Dehydration [Unknown]
  - Bedridden [Unknown]
  - Anaemia [Unknown]
  - Decreased appetite [Unknown]
  - Oropharyngeal discomfort [Unknown]
  - Ill-defined disorder [Unknown]

NARRATIVE: CASE EVENT DATE: 20240101
